FAERS Safety Report 7665269-9 (Version None)
Quarter: 2011Q3

REPORT INFORMATION
  Report Type: 
  Country: None (occurrence: None)
  Receive Date: 20110806
  Receipt Date: 20110519
  Transmission Date: 20111222
  Serious: No
  Sender: FDA-Public Use
  Company Number: US-ABBOTT-11P-163-0726914-00

PATIENT
  Sex: Male
  Weight: 92.616 kg

DRUGS (10)
  1. PRILOSEC [Concomitant]
     Indication: PRODUCT USED FOR UNKNOWN INDICATION
  2. FENOFIBRATE [Concomitant]
     Indication: PRODUCT USED FOR UNKNOWN INDICATION
  3. CITALOPRAM HYDROBROMIDE [Concomitant]
     Indication: PRODUCT USED FOR UNKNOWN INDICATION
  4. BYSTOLIC [Concomitant]
     Indication: PRODUCT USED FOR UNKNOWN INDICATION
  5. GABAPENTIN [Concomitant]
     Indication: PRODUCT USED FOR UNKNOWN INDICATION
  6. PRODAXA [Concomitant]
     Indication: PRODUCT USED FOR UNKNOWN INDICATION
  7. ARICEPT [Concomitant]
     Indication: PRODUCT USED FOR UNKNOWN INDICATION
  8. NIACIN [Concomitant]
     Indication: PRODUCT USED FOR UNKNOWN INDICATION
     Dosage: OTC
  9. NIASPAN [Suspect]
     Indication: PRODUCT USED FOR UNKNOWN INDICATION
     Dosage: 2000 MG DAILY
  10. LOPERAMIDE HCL [Concomitant]
     Indication: PRODUCT USED FOR UNKNOWN INDICATION

REACTIONS (2)
  - ABDOMINAL DISCOMFORT [None]
  - NAUSEA [None]
